FAERS Safety Report 9760358 (Version 2)
Quarter: 2013Q4

REPORT INFORMATION
  Report Type: Spontaneous
  Country: US (occurrence: None)
  Receive Date: 20131212
  Receipt Date: 20131213
  Transmission Date: 20140711
  Serious: Yes (Hospitalization)
  Sender: FDA-Public Use
  Company Number: 2013-US-004024

PATIENT
  Age: 51 Year
  Sex: Male
  Weight: 94.3 kg

DRUGS (5)
  1. CLOZAPINE [Suspect]
     Indication: MENTAL DISORDER
     Route: 048
     Dates: start: 20130820
  2. CLOZAPINE [Suspect]
     Indication: SCHIZOPHRENIA
     Route: 048
     Dates: start: 20130820
  3. RISPERDAL CONSTA [Concomitant]
  4. DEPAKOTE (VALPROATE SEMISODIUM) [Concomitant]
  5. PRILOSEC (OMEPRAZOLE) [Concomitant]

REACTIONS (25)
  - Pneumonia [None]
  - Aphasia [None]
  - Aspiration [None]
  - Dysphagia [None]
  - Diarrhoea [None]
  - Urinary tract infection [None]
  - Eye infection [None]
  - Wrong technique in drug usage process [None]
  - Delirium [None]
  - Pneumothorax [None]
  - Gastrointestinal tube insertion [None]
  - Mechanical ventilation [None]
  - Oxygen saturation decreased [None]
  - Blood urine present [None]
  - Leukocytosis [None]
  - Hypotension [None]
  - Dehydration [None]
  - Pneumonia aspiration [None]
  - Tachycardia [None]
  - Weight fluctuation [None]
  - Paralysis [None]
  - Coma [None]
  - Hip fracture [None]
  - Clostridium difficile infection [None]
  - Escherichia infection [None]
